FAERS Safety Report 19578526 (Version 1)
Quarter: 2021Q3

REPORT INFORMATION
  Report Type: Spontaneous
  Country: US (occurrence: US)
  Receive Date: 20210719
  Receipt Date: 20210719
  Transmission Date: 20211014
  Serious: Yes (Other)
  Sender: FDA-Public Use
  Company Number: US-GLAXOSMITHKLINE-US2021GSK155062

PATIENT
  Sex: Female

DRUGS (4)
  1. ZANTAC [Suspect]
     Active Substance: RANITIDINE HYDROCHLORIDE
     Dosage: WILL BE PROVIDED|BOTH
     Route: 065
     Dates: start: 201501, end: 201801
  2. ZANTAC [Suspect]
     Active Substance: RANITIDINE HYDROCHLORIDE
     Dosage: WILL BE PROVIDED|BOTH
     Route: 065
     Dates: start: 201501, end: 201801
  3. RANITIDINE CAPSULE [Suspect]
     Active Substance: RANITIDINE
     Dosage: WILL BE PROVIDED|BOTH
     Route: 065
     Dates: start: 201501, end: 201801
  4. ZANTAC [Suspect]
     Active Substance: RANITIDINE HYDROCHLORIDE
     Dosage: WILL BE PROVIDED|BOTH
     Route: 065
     Dates: start: 201501, end: 201801

REACTIONS (1)
  - Hepatic cancer [Unknown]
